FAERS Safety Report 16866017 (Version 1)
Quarter: 2019Q3

REPORT INFORMATION
  Report Type: Spontaneous
  Country: MY (occurrence: MY)
  Receive Date: 20190930
  Receipt Date: 20190930
  Transmission Date: 20191005
  Serious: Yes (Other)
  Sender: FDA-Public Use
  Company Number: MY-HBP-2019MY019535

PATIENT
  Sex: Female

DRUGS (2)
  1. ALOXI [Suspect]
     Active Substance: PALONOSETRON HYDROCHLORIDE
     Indication: PROPHYLAXIS OF NAUSEA AND VOMITING
     Dosage: 0.075 MG, SINGLE
     Route: 042
     Dates: start: 201908
  2. MORPHINE [Concomitant]
     Active Substance: MORPHINE
     Indication: SURGERY

REACTIONS (1)
  - Bradycardia [Recovered/Resolved]

NARRATIVE: CASE EVENT DATE: 201908
